FAERS Safety Report 9353409 (Version 1)
Quarter: 2013Q2

REPORT INFORMATION
  Report Type: Spontaneous
  Country: GB (occurrence: GB)
  Receive Date: 20130618
  Receipt Date: 20130618
  Transmission Date: 20140414
  Serious: Yes (Other)
  Sender: FDA-Public Use
  Company Number: GB-ASTRAZENECA-2013SE42805

PATIENT
  Sex: Female

DRUGS (1)
  1. SEROQUEL XL [Suspect]
     Route: 048

REACTIONS (1)
  - Electrocardiogram T wave inversion [Unknown]
